FAERS Safety Report 24754577 (Version 1)
Quarter: 2024Q4

REPORT INFORMATION
  Report Type: Spontaneous
  Country: US (occurrence: US)
  Receive Date: 20241219
  Receipt Date: 20241219
  Transmission Date: 20250115
  Serious: Yes (Death, Hospitalization, Other)
  Sender: SANOFI AVENTIS
  Company Number: US-DialogSolutions-SAAVPROD-PI717924-C1

PATIENT
  Age: 58 Year
  Sex: Male

DRUGS (4)
  1. OXALIPLATIN [Suspect]
     Active Substance: OXALIPLATIN
     Indication: Adenocarcinoma of colon
     Dosage: 100 MG/M2, 1X, AS A SINGLE 2-HOUR INFUSION
     Route: 041
  2. LEUCOVORIN [Suspect]
     Active Substance: LEUCOVORIN\LEUCOVORIN CALCIUM
     Indication: Adenocarcinoma of colon
     Dosage: 400 MG/M2, 1X ON DAY 1, INFUSION
     Route: 041
  3. FLUOROURACIL [Suspect]
     Active Substance: FLUOROURACIL
     Indication: Adenocarcinoma of colon
     Dosage: 400 MG/M2, 1X, BOLUS ON DAY 1
  4. FLUOROURACIL [Suspect]
     Active Substance: FLUOROURACIL
     Dosage: 2.4 G/M2, 1X, SINGLE 46-HOUR FU INFUSION
     Route: 041

REACTIONS (23)
  - Epigastric discomfort [Fatal]
  - Toxicity to various agents [Fatal]
  - Fatigue [Fatal]
  - Nausea [Fatal]
  - Vomiting [Fatal]
  - Mucosal inflammation [Fatal]
  - Neutropenia [Fatal]
  - Hypernatraemia [Fatal]
  - Atrial fibrillation [Fatal]
  - Neutropenic colitis [Fatal]
  - Myelosuppression [Fatal]
  - Pancytopenia [Fatal]
  - Multiple organ dysfunction syndrome [Fatal]
  - Renal infarct [Fatal]
  - Splenic infarction [Fatal]
  - Hypoxia [Fatal]
  - Lung consolidation [Fatal]
  - Pleural effusion [Fatal]
  - Acute respiratory distress syndrome [Fatal]
  - Renal failure [Fatal]
  - Bradycardia [Fatal]
  - Middle cerebral artery stroke [Fatal]
  - Sepsis [Fatal]
